FAERS Safety Report 7070654-2 (Version None)
Quarter: 2010Q4

REPORT INFORMATION
  Report Type: 
  Country: None (occurrence: None)
  Receive Date: 20101029
  Receipt Date: 20101025
  Transmission Date: 20110411
  Serious: Yes (Hospitalization)
  Sender: FDA-Public Use
  Company Number: JP-PFIZER INC-2010067648

PATIENT
  Age: 67 Year
  Sex: Male
  Weight: 48 kg

DRUGS (7)
  1. SUNITINIB MALATE [Suspect]
     Indication: RENAL CELL CARCINOMA
     Dosage: 50 MG, 1X/DAY
     Route: 048
     Dates: start: 20081220
  2. FENTANYL [Suspect]
     Indication: CANCER PAIN
     Dosage: 21 MG, EVERY 3 DAYS
     Route: 003
  3. GASTER OD [Concomitant]
     Dosage: 20 MG, 1X/DAY
     Route: 048
  4. HYPEN [Concomitant]
     Dosage: 200 MG, 2X/DAY
     Route: 048
  5. GABAPENTIN [Concomitant]
     Dosage: 200 MG, 3X/DAY
     Route: 048
  6. OPALMON [Concomitant]
     Dosage: 5 UG, 3X/DAY
     Route: 048
  7. TAMSULOSIN HCL [Concomitant]
     Dosage: 0.2 MG, 1X/DAY
     Route: 048

REACTIONS (1)
  - ALTERED STATE OF CONSCIOUSNESS [None]
